FAERS Safety Report 9006802 (Version 1)
Quarter: 2013Q1

REPORT INFORMATION
  Report Type: Report from Study
  Country: SE (occurrence: SE)
  Receive Date: 20130110
  Receipt Date: 20130110
  Transmission Date: 20140127
  Serious: Yes (Other)
  Sender: FDA-Public Use
  Company Number: SE-UCBSA-074535

PATIENT
  Age: 47 Year
  Sex: Female

DRUGS (2)
  1. CIMZIA [Suspect]
     Indication: RHEUMATOID ARTHRITIS
     Route: 058
     Dates: start: 20120604, end: 20121214
  2. PREDNISOLONE [Concomitant]
     Dosage: 7.5 MG
     Dates: start: 20120401, end: 20121030

REACTIONS (2)
  - Guttate psoriasis [Unknown]
  - Pustular psoriasis [Unknown]
